FAERS Safety Report 7604498-7 (Version None)
Quarter: 2011Q3

REPORT INFORMATION
  Report Type: 
  Country: None (occurrence: None)
  Receive Date: 20110712
  Receipt Date: 20110701
  Transmission Date: 20111222
  Serious: Yes (Other)
  Sender: FDA-Public Use
  Company Number: AU-JNJFOC-20110206574

PATIENT
  Sex: Female

DRUGS (12)
  1. STELARA [Suspect]
     Indication: PSORIATIC ARTHROPATHY
     Route: 058
     Dates: start: 20101111
  2. CORTISONE ACETATE [Concomitant]
     Route: 061
  3. FERROUS SULFATE TAB [Concomitant]
  4. STELARA [Suspect]
     Route: 058
     Dates: start: 20110429
  5. NEXIUM [Concomitant]
  6. DIFORMIN [Concomitant]
  7. ALL OTHER THERAPEUTIC PRODUCT [Concomitant]
  8. NAPROSON [Concomitant]
  9. METHOTREXATE [Concomitant]
     Route: 065
  10. STELARA [Suspect]
     Route: 058
     Dates: start: 20110303
  11. CITALOPRAM HYDROBROMIDE [Concomitant]
  12. STELARA [Suspect]
     Route: 058
     Dates: start: 20101209

REACTIONS (5)
  - BONE PAIN [None]
  - ERYTHEMA [None]
  - ARTHRALGIA [None]
  - ULCER [None]
  - DRUG INEFFECTIVE FOR UNAPPROVED INDICATION [None]
